FAERS Safety Report 4459898-3 (Version None)
Quarter: 2004Q3

REPORT INFORMATION
  Report Type: 
  Country: None (occurrence: None)
  Receive Date: 20040928
  Receipt Date: 20030902
  Transmission Date: 20050211
  Serious: No
  Sender: FDA-Public Use
  Company Number: US-GLAXOSMITHKLINE-A0424322A

PATIENT
  Age: 63 Year
  Sex: Female

DRUGS (9)
  1. SEREVENT [Suspect]
     Indication: ASTHMA
     Dosage: 1PUFF TWICE PER DAY
     Route: 055
     Dates: start: 20030815
  2. PULMICORT [Concomitant]
  3. ALBUTEROL [Concomitant]
  4. SINGULAIR [Concomitant]
  5. ZANAFLEX [Concomitant]
  6. PHENERGAN HCL [Concomitant]
  7. CIPRO [Concomitant]
  8. XANAX [Concomitant]
  9. SALMETEROL [Suspect]
     Indication: ASTHMA
     Route: 055

REACTIONS (7)
  - CHILLS [None]
  - DIARRHOEA [None]
  - DYSGEUSIA [None]
  - GASTRIC INFECTION [None]
  - NAUSEA [None]
  - PYREXIA [None]
  - VOMITING [None]
